FAERS Safety Report 6707357-7 (Version None)
Quarter: 2010Q2

REPORT INFORMATION
  Report Type: 
  Country: None (occurrence: None)
  Receive Date: 20100503
  Receipt Date: 20091130
  Transmission Date: 20101027
  Serious: No
  Sender: FDA-Public Use
  Company Number: US-ASTRAZENECA-2009SE29861

PATIENT
  Age: 19 Year
  Sex: Female
  Weight: 115 kg

DRUGS (7)
  1. NEXIUM [Suspect]
     Indication: GASTRITIS
     Route: 048
     Dates: start: 20091110
  2. PRILOSEC [Interacting]
     Indication: GASTRITIS
     Route: 048
     Dates: start: 20090701, end: 20091110
  3. AZURETTE [Interacting]
     Indication: POLYCYSTIC OVARIES
     Route: 048
     Dates: start: 20091115
  4. VITAMIN D [Concomitant]
  5. CALCIUM [Concomitant]
  6. CINNAMEDRINE [Concomitant]
  7. PHENACETIN [Concomitant]

REACTIONS (6)
  - DIZZINESS [None]
  - DRUG INTERACTION [None]
  - HEART RATE DECREASED [None]
  - HEART RATE IRREGULAR [None]
  - HYPOTENSION [None]
  - NAUSEA [None]
